FAERS Safety Report 6685862-X (Version None)
Quarter: 2010Q2

REPORT INFORMATION
  Report Type: 
  Country: None (occurrence: None)
  Receive Date: 20100419
  Receipt Date: 20100409
  Transmission Date: 20101027
  Serious: Yes (Hospitalization, Disabling, Other)
  Sender: FDA-Public Use
  Company Number: GB-ABBOTT-10P-167-0635081-00

PATIENT
  Age: 60 Year

DRUGS (2)
  1. SUPRALIP [Suspect]
     Indication: BLOOD CHOLESTEROL INCREASED
     Route: 048
     Dates: start: 20100204, end: 20100219
  2. LEVOTHYROXINE [Concomitant]
     Indication: HYPOTHYROIDISM
     Route: 048
     Dates: start: 20080101

REACTIONS (7)
  - GASTROINTESTINAL DISORDER [None]
  - HEPATITIS [None]
  - JOINT SWELLING [None]
  - MOVEMENT DISORDER [None]
  - MUSCULAR WEAKNESS [None]
  - PRURITUS [None]
  - URTICARIA [None]
